FAERS Safety Report 16821482 (Version 1)
Quarter: 2019Q3

REPORT INFORMATION
  Report Type: Spontaneous
  Country: US (occurrence: US)
  Receive Date: 20190918
  Receipt Date: 20190918
  Transmission Date: 20191005
  Serious: Yes (Hospitalization)
  Sender: FDA-Public Use
  Company Number: US-PFIZER INC-2018420754

PATIENT
  Age: 96 Year
  Sex: Female
  Weight: 63.5 kg

DRUGS (1)
  1. LYRICA [Suspect]
     Active Substance: PREGABALIN
     Indication: HEADACHE
     Dosage: 25 MG, 2X/DAY (ONCE IN THE MORNING AND ONCE A NIGHT)
     Route: 048
     Dates: start: 2018

REACTIONS (4)
  - Drug effective for unapproved indication [Unknown]
  - Urinary tract infection [Unknown]
  - Haemorrhage urinary tract [Unknown]
  - Off label use [Unknown]

NARRATIVE: CASE EVENT DATE: 2018
